FAERS Safety Report 21618029 (Version 4)
Quarter: 2023Q1

REPORT INFORMATION
  Report Type: Report from Study
  Country: AR (occurrence: AR)
  Receive Date: 20221119
  Receipt Date: 20230113
  Transmission Date: 20230417
  Serious: Yes (Life-Threatening, Hospitalization, Other)
  Sender: FDA-Public Use
  Company Number: AR-002147023-NVSC2022AR259422

PATIENT
  Age: 42 Year
  Sex: Male

DRUGS (3)
  1. COSENTYX [Suspect]
     Active Substance: SECUKINUMAB
     Indication: Psoriasis
     Dosage: 300 MG, QMO
     Route: 058
     Dates: start: 20200228, end: 20220921
  2. LIRAGLUTIDE [Concomitant]
     Active Substance: LIRAGLUTIDE
     Indication: Overweight
     Dosage: UNK UNK, QMO
     Route: 058
  3. LIRAGLUTIDE [Concomitant]
     Active Substance: LIRAGLUTIDE
     Dosage: 1.8 DAILY (MINIMUM 0.6 MAXIMUM 3)
     Route: 065
     Dates: start: 20220711, end: 20220919

REACTIONS (13)
  - Fat necrosis [Unknown]
  - Bacterial infection [Recovering/Resolving]
  - Impaired healing [Unknown]
  - Pyrexia [Recovered/Resolved]
  - Staphylococcal infection [Not Recovered/Not Resolved]
  - Oedema peripheral [Unknown]
  - Decreased immune responsiveness [Unknown]
  - Pulmonary congestion [Recovering/Resolving]
  - Cough [Unknown]
  - Dyspnoea [Unknown]
  - Cellulitis [Recovering/Resolving]
  - Skin ulcer [Unknown]
  - Red blood cell count increased [Unknown]

NARRATIVE: CASE EVENT DATE: 20220901
